FAERS Safety Report 24837118 (Version 1)
Quarter: 2025Q1

REPORT INFORMATION
  Report Type: Spontaneous
  Country: CA (occurrence: CA)
  Receive Date: 20250113
  Receipt Date: 20250113
  Transmission Date: 20250409
  Serious: Yes (Life-Threatening)
  Sender: FRESENIUS KABI
  Company Number: CA-FreseniusKabi-FK202500266

PATIENT
  Age: 33 Year
  Sex: Female

DRUGS (1)
  1. MORPHINE [Suspect]
     Active Substance: MORPHINE
     Indication: Product used for unknown indication
     Route: 058

REACTIONS (1)
  - Somnolence [Recovered/Resolved]
